FAERS Safety Report 21863009 (Version 1)
Quarter: 2023Q1

REPORT INFORMATION
  Report Type: Spontaneous
  Country: RO (occurrence: RO)
  Receive Date: 20230115
  Receipt Date: 20230115
  Transmission Date: 20230417
  Serious: Yes (Hospitalization, Other)
  Sender: FDA-Public Use
  Company Number: None

PATIENT
  Age: 63 Year
  Sex: Female

DRUGS (6)
  1. DIGOXIN [Suspect]
     Active Substance: DIGOXIN
     Indication: Suicide attempt
  2. METOPROLOL [Suspect]
     Active Substance: METOPROLOL
     Indication: Suicide attempt
  3. DIAZEPAM [Suspect]
     Active Substance: DIAZEPAM
     Indication: Suicide attempt
  4. ACETAMINOPHEN [Suspect]
     Active Substance: ACETAMINOPHEN
     Indication: Suicide attempt
  5. TRAMADOL [Suspect]
     Active Substance: TRAMADOL
     Indication: Suicide attempt
  6. CHLORZOXAZONE [Suspect]
     Active Substance: CHLORZOXAZONE
     Indication: Suicide attempt

REACTIONS (2)
  - Toxicity to various agents [Recovered/Resolved]
  - Stress cardiomyopathy [Recovered/Resolved]
